FAERS Safety Report 4555680-7 (Version None)
Quarter: 2005Q1

REPORT INFORMATION
  Report Type: 
  Country: None (occurrence: None)
  Receive Date: 20050118
  Receipt Date: 20050103
  Transmission Date: 20050727
  Serious: Yes (Other)
  Sender: FDA-Public Use
  Company Number: 2005001838

PATIENT
  Age: 71 Year
  Sex: Female
  Weight: 76.2043 kg

DRUGS (8)
  1. LISTERINE (MENTHOL, METHYL SALICYLATE, EUCALYPTOL, THYMOL) [Suspect]
     Indication: DENTAL DISORDER PROPHYLAXIS
     Dosage: AMT ONCE DAILY, ORAL
     Route: 048
     Dates: start: 20040801
  2. ALLERGY MEDICATION (ALLERGY MEDICATION) [Concomitant]
  3. PHENYTOIN SODIUM [Concomitant]
  4. FLUTICASONE PROPIONATE [Concomitant]
  5. CETIRIZINE HCL [Concomitant]
  6. CLONAZEPAM [Concomitant]
  7. SALBUTAMOL (SALBUTAMOL) [Concomitant]
  8. ESOMEPRAZOLE (ESOMEPRAZOLE) [Concomitant]

REACTIONS (6)
  - DEPRESSED LEVEL OF CONSCIOUSNESS [None]
  - ERYTHEMA [None]
  - FOOD ALLERGY [None]
  - GLOSSODYNIA [None]
  - ORAL PAIN [None]
  - TREMOR [None]
